FAERS Safety Report 9126288 (Version 1)
Quarter: 2013Q1

REPORT INFORMATION
  Report Type: Spontaneous
  Country: FR (occurrence: FR)
  Receive Date: 20130117
  Receipt Date: 20130117
  Transmission Date: 20140127
  Serious: Yes (Hospitalization)
  Sender: FDA-Public Use
  Company Number: FR-ROCHE-1178966

PATIENT
  Sex: 0

DRUGS (3)
  1. RIVOTRIL [Suspect]
     Indication: PRODUCT USED FOR UNKNOWN INDICATION
     Route: 065
     Dates: start: 20130109, end: 20130110
  2. ALDACTONE [Concomitant]
     Route: 065
  3. THERALEN [Concomitant]
     Route: 065

REACTIONS (1)
  - Cyanosis [Unknown]
